FAERS Safety Report 9873855 (Version 1)
Quarter: 2014Q1

REPORT INFORMATION
  Report Type: Other
  Country: US (occurrence: US)
  Receive Date: 20140206
  Receipt Date: 20140206
  Transmission Date: 20141002
  Serious: No
  Sender: FDA-Public Use
  Company Number: US-ACORDA-ACO_34479_2013

PATIENT
  Age: 64 Year
  Sex: Female
  Weight: 74.83 kg

DRUGS (2)
  1. AMPYRA [Suspect]
     Indication: GAIT DISTURBANCE
     Dosage: 10 MG, QD
     Route: 048
     Dates: start: 201302, end: 20130210
  2. AMPYRA [Suspect]
     Dosage: 15 MG, UNK
     Route: 048
     Dates: start: 20130210

REACTIONS (2)
  - Wrong technique in drug usage process [Unknown]
  - Inappropriate schedule of drug administration [Unknown]
